FAERS Safety Report 17190305 (Version 1)
Quarter: 2019Q4

REPORT INFORMATION
  Report Type: Spontaneous
  Country: US (occurrence: US)
  Receive Date: 20191129
  Receipt Date: 20191129
  Transmission Date: 20200122
  Serious: No
  Sender: FDA-Public Use
  Company Number: None

PATIENT
  Age: 29 Year
  Sex: Male

DRUGS (1)
  1. INVEGA SUSTENNA [Suspect]
     Active Substance: PALIPERIDONE PALMITATE
     Dosage: ?          OTHER STRENGTH:117/0.5;?
     Route: 030
     Dates: start: 201811

REACTIONS (1)
  - Off label use [None]

NARRATIVE: CASE EVENT DATE: 20191129
